FAERS Safety Report 23726676 (Version 1)
Quarter: 2024Q2

REPORT INFORMATION
  Report Type: Spontaneous
  Country: US (occurrence: US)
  Receive Date: 20240410
  Receipt Date: 20240410
  Transmission Date: 20240716
  Serious: Yes (Other)
  Sender: FDA-Public Use
  Company Number: US-SA-SAC20240406000024

PATIENT

DRUGS (1)
  1. TOUJEO [Suspect]
     Active Substance: INSULIN GLARGINE
     Dosage: UNK

REACTIONS (20)
  - Paralysis [Unknown]
  - Cardiac flutter [Unknown]
  - Pain in extremity [Unknown]
  - Pain [Unknown]
  - Hypoaesthesia [Unknown]
  - Nausea [Unknown]
  - Dizziness [Unknown]
  - Balance disorder [Unknown]
  - Palpitations [Unknown]
  - Tremor [Unknown]
  - Paraesthesia [Unknown]
  - Fatigue [Unknown]
  - Muscular weakness [Unknown]
  - Abdominal pain [Unknown]
  - Back pain [Unknown]
  - Arthralgia [Unknown]
  - Chest discomfort [Unknown]
  - Flatulence [Unknown]
  - Spinal disorder [Unknown]
  - Blood glucose increased [Unknown]
